FAERS Safety Report 10186852 (Version 2)
Quarter: 2014Q2

REPORT INFORMATION
  Report Type: Spontaneous
  Country: DE (occurrence: DE)
  Receive Date: 20140522
  Receipt Date: 20140605
  Transmission Date: 20141212
  Serious: Yes (Other)
  Sender: FDA-Public Use
  Company Number: GXKR2014DE001955

PATIENT
  Age: 69 Year
  Sex: Male
  Weight: 75 kg

DRUGS (1)
  1. IBUHEXAL [Suspect]
     Indication: CERVICOBRACHIAL SYNDROME
     Dosage: MAX. 800 MG PER DAY FOR CA 5-6 MONTHS, PRN
     Route: 048
     Dates: end: 201405

REACTIONS (3)
  - Optic atrophy [Not Recovered/Not Resolved]
  - Visual acuity reduced [Not Recovered/Not Resolved]
  - Vision blurred [Not Recovered/Not Resolved]
